FAERS Safety Report 17476465 (Version 3)
Quarter: 2020Q1

REPORT INFORMATION
  Report Type: Spontaneous
  Country: TR (occurrence: TR)
  Receive Date: 20200228
  Receipt Date: 20200316
  Transmission Date: 20200409
  Serious: Yes (Other)
  Sender: FDA-Public Use
  Company Number: TR-PFIZER INC-2020087836

PATIENT
  Age: 61 Year

DRUGS (5)
  1. CHAMPIX [Suspect]
     Active Substance: VARENICLINE TARTRATE
     Indication: SMOKING CESSATION THERAPY
     Dosage: 0.5 MG, UNK
     Dates: start: 20200120
  2. VIRATIT [Concomitant]
     Dosage: 0.5 MG, UNK
  3. CHAMPIX [Suspect]
     Active Substance: VARENICLINE TARTRATE
     Dosage: 1 MG, UNK
  4. DILTIZEM [Concomitant]
     Indication: HYPERTENSION
     Dosage: 60 MG, UNK
  5. CIPRALEX [Concomitant]
     Active Substance: ESCITALOPRAM OXALATE
     Dosage: 10 MG, UNK

REACTIONS (6)
  - Respiratory disorder [Unknown]
  - Neoplasm malignant [Unknown]
  - Lymphadenopathy [Unknown]
  - Hepatitis B [Unknown]
  - Swelling [Unknown]
  - Contusion [Unknown]
